FAERS Safety Report 9631310 (Version 1)
Quarter: 2013Q4

REPORT INFORMATION
  Report Type: Spontaneous
  Country: CN (occurrence: None)
  Receive Date: 20131016
  Receipt Date: 20131016
  Transmission Date: 20140711
  Serious: Yes (Hospitalization, Other)
  Sender: FDA-Public Use
  Company Number: FK201304534

PATIENT
  Age: 98 Year
  Sex: Male

DRUGS (4)
  1. AMIODARONE HCL [Suspect]
     Indication: PRODUCT USED FOR UNKNOWN INDICATION
  2. CITALOPRAM [Suspect]
     Indication: PRODUCT USED FOR UNKNOWN INDICATION
  3. LINEZOLID [Suspect]
     Indication: PRODUCT USED FOR UNKNOWN INDICATION
     Dosage: 600 MG, 1 UB 12 HR, INTRAVENOUS (NOT OTHERWISE SPECIFIED)
     Route: 042
  4. VANCOMYCIN (VANCOMYCIN) [Concomitant]

REACTIONS (8)
  - Serotonin syndrome [None]
  - Drug interaction [None]
  - Hallucination [None]
  - Alanine aminotransferase increased [None]
  - Aspartate aminotransferase increased [None]
  - Blood creatine phosphokinase increased [None]
  - Respiratory depression [None]
  - Computerised tomogram head abnormal [None]
